FAERS Safety Report 7553921-5 (Version None)
Quarter: 2011Q2

REPORT INFORMATION
  Report Type: 
  Country: None (occurrence: None)
  Receive Date: 20110609
  Receipt Date: 20110603
  Transmission Date: 20111010
  Serious: No
  Sender: FDA-Public Use
  Company Number: 2011-00522

PATIENT
  Sex: Female

DRUGS (1)
  1. OXYMETAZOLINE HCL [Suspect]
     Dates: start: 20040501

REACTIONS (2)
  - AGEUSIA [None]
  - ANOSMIA [None]
